FAERS Safety Report 4806436-9 (Version None)
Quarter: 2005Q4

REPORT INFORMATION
  Report Type: 
  Country: None (occurrence: None)
  Receive Date: 20051021
  Receipt Date: 20051013
  Transmission Date: 20060501
  Serious: Yes (Hospitalization)
  Sender: FDA-Public Use
  Company Number: PHRM2005FR02714

PATIENT
  Age: 12 Year
  Sex: Female

DRUGS (1)
  1. VOLTAREN [Suspect]
     Indication: PAIN IN EXTREMITY
     Route: 048
     Dates: start: 20050825, end: 20050827

REACTIONS (10)
  - BACTERIAL INFECTION [None]
  - BURNING SENSATION [None]
  - CONDITION AGGRAVATED [None]
  - GROIN PAIN [None]
  - INFLAMMATION [None]
  - INGUINAL MASS [None]
  - LYMPHADENITIS [None]
  - NEUTROPHIL COUNT INCREASED [None]
  - PRURIGO [None]
  - PYREXIA [None]
